FAERS Safety Report 7007413-2 (Version None)
Quarter: 2010Q3

REPORT INFORMATION
  Report Type: 
  Country: None (occurrence: None)
  Receive Date: 20100914
  Receipt Date: 20100908
  Transmission Date: 20110219
  Serious: Yes (Other)
  Sender: FDA-Public Use
  Company Number: 2010SP040353

PATIENT
  Age: 30 Year
  Sex: Female

DRUGS (1)
  1. IMPLANON [Suspect]
     Indication: CONTRACEPTION
     Dosage: 1 DF; SBDE
     Route: 059
     Dates: start: 20100511, end: 20100601

REACTIONS (4)
  - HYPOAESTHESIA [None]
  - MUSCULOSKELETAL PAIN [None]
  - NEURALGIA [None]
  - PAIN IN EXTREMITY [None]
